FAERS Safety Report 7315108-0 (Version None)
Quarter: 2011Q1

REPORT INFORMATION
  Report Type: 
  Country: None (occurrence: None)
  Receive Date: 20110225
  Receipt Date: 20110216
  Transmission Date: 20110831
  Serious: Yes (Hospitalization)
  Sender: FDA-Public Use
  Company Number: FR-EISAI INC-E3810-04468-SPO-FR

PATIENT
  Age: 68 Year
  Sex: Male

DRUGS (10)
  1. AMAREL [Concomitant]
     Route: 048
  2. PHYSIOTENS [Concomitant]
     Route: 048
  3. BISOPROLOL FUMARATE [Concomitant]
  4. INDAPAMIDE [Concomitant]
  5. INDAPAMIDE [Concomitant]
  6. CAELYX [Suspect]
     Indication: KAPOSI'S SARCOMA
     Route: 042
     Dates: start: 20101001, end: 20101227
  7. PLAVIX [Concomitant]
  8. PARIET (RABEPRAZOLE) [Suspect]
     Route: 048
  9. EXFORGE [Concomitant]
     Dosage: 10 / 160 MG
     Route: 048
  10. GLUCOPHAGE [Concomitant]
     Route: 048

REACTIONS (2)
  - PULMONARY EMBOLISM [None]
  - DEEP VEIN THROMBOSIS [None]
